FAERS Safety Report 5047524-4 (Version None)
Quarter: 2006Q3

REPORT INFORMATION
  Report Type: 
  Country: None (occurrence: None)
  Receive Date: 20060703
  Receipt Date: 20060622
  Transmission Date: 20061208
  Serious: Yes (Hospitalization)
  Sender: FDA-Public Use
  Company Number: 430002K06USA

PATIENT
  Age: 42 Year
  Sex: Female

DRUGS (5)
  1. NOVANTRONE [Suspect]
     Indication: MULTIPLE SCLEROSIS
     Dosage: SEE IMAGE
     Route: 042
     Dates: start: 20051228, end: 20051228
  2. NOVANTRONE [Suspect]
     Indication: MULTIPLE SCLEROSIS
     Dosage: SEE IMAGE
     Route: 042
     Dates: start: 20060425, end: 20060425
  3. BACLOFEN [Concomitant]
  4. DITROPAN XL (OXYBUTYNIN) [Concomitant]
  5. REBIF [Concomitant]

REACTIONS (4)
  - ASTHENIA [None]
  - CONSTIPATION [None]
  - FEBRILE NEUTROPENIA [None]
  - URINARY TRACT INFECTION [None]
